FAERS Safety Report 5529578-1 (Version None)
Quarter: 2007Q4

REPORT INFORMATION
  Report Type: 
  Country: None (occurrence: None)
  Receive Date: 20071129
  Receipt Date: 20071120
  Transmission Date: 20080405
  Serious: Yes (Disabling)
  Sender: FDA-Public Use
  Company Number: JP-ASTRAZENECA-2007AP07193

PATIENT
  Age: 1045 Month
  Sex: Male
  Weight: 48 kg

DRUGS (12)
  1. OMEPRAL [Suspect]
     Indication: GASTRIC ULCER
     Route: 048
     Dates: start: 20070921, end: 20071012
  2. RYTHMODAN R [Concomitant]
     Indication: ATRIAL FIBRILLATION
     Route: 048
     Dates: start: 20050101, end: 20071016
  3. ALDACTONE [Concomitant]
     Indication: CARDIAC FAILURE
     Route: 048
     Dates: start: 20050101, end: 20071002
  4. ASPIRIN [Concomitant]
     Indication: CEREBRAL INFARCTION
     Route: 048
     Dates: start: 20050101, end: 20070928
  5. ARTIST [Concomitant]
     Indication: CARDIAC FAILURE
     Route: 048
     Dates: start: 20050101, end: 20070930
  6. EPADEL S [Concomitant]
     Indication: CEREBRAL INFARCTION
     Route: 048
     Dates: start: 20050101, end: 20071010
  7. MAGNESIUM OXIDE [Concomitant]
     Indication: CONSTIPATION
     Route: 048
     Dates: start: 20050101, end: 20071010
  8. MARZULENE-S [Concomitant]
     Indication: GASTRIC ULCER
     Route: 048
     Dates: start: 20050101, end: 20071010
  9. DIOVAN [Concomitant]
     Indication: HYPERTENSION
     Route: 048
     Dates: start: 20050101, end: 20071002
  10. BIOLACTIS [Concomitant]
     Indication: DIARRHOEA
     Route: 048
     Dates: start: 20070823, end: 20071010
  11. VESICARE [Concomitant]
     Indication: HYPERTONIC BLADDER
     Route: 048
     Dates: start: 20070906, end: 20071010
  12. PLAVIX [Concomitant]
     Indication: CEREBRAL INFARCTION
     Route: 048
     Dates: start: 20070929, end: 20071016

REACTIONS (2)
  - ALTERED STATE OF CONSCIOUSNESS [None]
  - HYPONATRAEMIA [None]
